FAERS Safety Report 22242911 (Version 2)
Quarter: 2024Q2

REPORT INFORMATION
  Report Type: Other
  Country: OM (occurrence: None)
  Receive Date: 20230424
  Receipt Date: 20240524
  Transmission Date: 20240716
  Serious: Yes (Other)
  Sender: FDA-Public Use
  Company Number: OM-ROCHE-3334840

PATIENT
  Age: 41 Year
  Sex: Male

DRUGS (4)
  1. BEVACIZUMAB [Suspect]
     Active Substance: BEVACIZUMAB
     Indication: Non-small cell lung cancer
     Route: 065
  2. ALECTINIB [Suspect]
     Active Substance: ALECTINIB
     Indication: Non-small cell lung cancer
     Route: 065
  3. CARBOPLATIN [Suspect]
     Active Substance: CARBOPLATIN
     Indication: Non-small cell lung cancer
     Route: 065
     Dates: start: 202106
  4. PEMETREXED [Suspect]
     Active Substance: PEMETREXED
     Indication: Non-small cell lung cancer
     Route: 065
     Dates: start: 202106

REACTIONS (2)
  - Brain radiation necrosis [Unknown]
  - Headache [Unknown]
